FAERS Safety Report 18197835 (Version 2)
Quarter: 2020Q4

REPORT INFORMATION
  Report Type: Spontaneous
  Country: US (occurrence: US)
  Receive Date: 20200826
  Receipt Date: 20201028
  Transmission Date: 20210113
  Serious: Yes (Death, Hospitalization)
  Sender: FDA-Public Use
  Company Number: US-PFIZER INC-2020328540

PATIENT
  Age: 79 Year
  Sex: Female
  Weight: 74.83 kg

DRUGS (8)
  1. MEKTOVI [Suspect]
     Active Substance: BINIMETINIB
     Indication: METASTATIC MALIGNANT MELANOMA
     Dosage: MOSTLY OFF DURING HOSPITALIZATION
     Dates: start: 20200326
  2. LOSARTAN. [Concomitant]
     Active Substance: LOSARTAN
     Dosage: UNK
     Dates: end: 202005
  3. PREDNISONE. [Concomitant]
     Active Substance: PREDNISONE
     Dosage: UNK, AS NEEDED
  4. BRAFTOVI [Suspect]
     Active Substance: ENCORAFENIB
     Indication: METASTATIC MALIGNANT MELANOMA
     Dosage: UNK (VARIED, WITH WEEKENDS MOSTLY OFF AND SOMETIMES WEDNESDAYS OFF,)
     Dates: start: 20200326
  5. VALSARTAN. [Concomitant]
     Active Substance: VALSARTAN
  6. SOTALOL. [Concomitant]
     Active Substance: SOTALOL
     Dosage: UNK
     Dates: end: 202005
  7. DILTIAZEM. [Concomitant]
     Active Substance: DILTIAZEM
     Dosage: UNK
     Dates: end: 202005
  8. PRADAXA [Concomitant]
     Active Substance: DABIGATRAN ETEXILATE MESYLATE
     Dosage: UNK
     Dates: start: 2017

REACTIONS (10)
  - Gastrointestinal disorder [Unknown]
  - Colitis [Unknown]
  - Asthenia [Unknown]
  - Pain in extremity [Unknown]
  - Neoplasm progression [Fatal]
  - Arthralgia [Unknown]
  - Dysstasia [Unknown]
  - Feeding disorder [Unknown]
  - Gastrointestinal pain [Unknown]
  - Gastritis [Unknown]

NARRATIVE: CASE EVENT DATE: 202005
